FAERS Safety Report 7750796 (Version 3)
Quarter: 2014Q4

REPORT INFORMATION
  Report Type: Spontaneous
  Country: IT (occurrence: IT)
  Receive Date: 20110106
  Receipt Date: 20141218
  Transmission Date: 20150529
  Serious: Yes (Other)
  Sender: FDA-Public Use
  Company Number: PHHY2010IT88097

PATIENT
  Age: 37 Year
  Sex: Female
  Weight: 90 kg

DRUGS (1)
  1. CICLOSPORIN [Suspect]
     Active Substance: CYCLOSPORINE
     Indication: DERMATITIS CONTACT
     Dosage: 250 MG DAILY
     Route: 065

REACTIONS (5)
  - Condition aggravated [Unknown]
  - Skin exfoliation [Unknown]
  - Dermatitis contact [Unknown]
  - Erythema [Unknown]
  - Skin lesion [Unknown]
